FAERS Safety Report 24292387 (Version 2)
Quarter: 2024Q4

REPORT INFORMATION
  Report Type: Spontaneous
  Country: SE (occurrence: SE)
  Receive Date: 20240906
  Receipt Date: 20241011
  Transmission Date: 20250115
  Serious: Yes (Other)
  Sender: GLAXOSMITHKLINE
  Company Number: SE-GLAXOSMITHKLINE-SE2024EME110271

PATIENT

DRUGS (1)
  1. ALBUTEROL SULFATE [Suspect]
     Active Substance: ALBUTEROL SULFATE
     Indication: Product used for unknown indication
     Dosage: 0.1 MG/DOSE (200 DOSES)
     Route: 055

REACTIONS (3)
  - Asphyxia [Unknown]
  - Poor quality product administered [Unknown]
  - Product complaint [Unknown]
